FAERS Safety Report 7644049-4 (Version None)
Quarter: 2011Q3

REPORT INFORMATION
  Report Type: 
  Country: None (occurrence: None)
  Receive Date: 20110729
  Receipt Date: 20110725
  Transmission Date: 20111222
  Serious: Yes (Other)
  Sender: FDA-Public Use
  Company Number: US-BRISTOL-MYERS SQUIBB COMPANY-15921315

PATIENT
  Age: 93 Year
  Sex: Female

DRUGS (3)
  1. HYDROCHLOROTHIAZIDE [Concomitant]
  2. WARFARIN SODIUM [Suspect]
     Indication: THROMBOSIS
     Dosage: INITIALLY TAKEN 2MG,THEN INCREASED TO 4MG
  3. POTASSIUM CHLORIDE [Concomitant]

REACTIONS (2)
  - KNEE OPERATION [None]
  - INTERNATIONAL NORMALISED RATIO ABNORMAL [None]
